FAERS Safety Report 7029268-2 (Version None)
Quarter: 2010Q4

REPORT INFORMATION
  Report Type: 
  Country: None (occurrence: None)
  Receive Date: 20101005
  Receipt Date: 20100930
  Transmission Date: 20110411
  Serious: Yes (Hospitalization, Other)
  Sender: FDA-Public Use
  Company Number: BR-SANOFI-AVENTIS-2010SA059015

PATIENT
  Sex: Female
  Weight: 57 kg

DRUGS (14)
  1. LANTUS [Suspect]
     Indication: TYPE 2 DIABETES MELLITUS
     Route: 058
     Dates: start: 20060101
  2. OPTIPEN [Suspect]
     Dates: start: 20060101, end: 20100930
  3. GLIMEPIRIDE [Concomitant]
     Indication: TYPE 2 DIABETES MELLITUS
     Route: 048
  4. TAPAZOL [Concomitant]
     Indication: HYPERTHYROIDISM
     Route: 048
  5. ATENOLOL [Concomitant]
     Indication: HYPERTENSION
     Route: 048
  6. LOSARTAN POTASSIUM [Concomitant]
     Indication: HYPERTENSION
     Route: 048
  7. AMLODIPINE BESYLATE [Concomitant]
     Indication: HYPERTENSION
     Route: 048
  8. ALL OTHER THERAPEUTIC PRODUCTS [Concomitant]
     Route: 048
  9. FUROSEMIDE [Concomitant]
     Route: 048
  10. FERROUS SULFATE [Concomitant]
     Indication: VITAMIN SUPPLEMENTATION
     Route: 048
  11. ASCORBIC ACID [Concomitant]
     Indication: VITAMIN SUPPLEMENTATION
     Route: 048
  12. FOLIC ACID [Concomitant]
     Indication: VITAMIN SUPPLEMENTATION
     Route: 048
  13. VITAMIN B COMPLEX CAP [Concomitant]
     Indication: VITAMIN SUPPLEMENTATION
     Route: 048
  14. ALL OTHER THERAPEUTIC PRODUCTS [Concomitant]

REACTIONS (5)
  - HYPERHIDROSIS [None]
  - HYPOGLYCAEMIA [None]
  - RENAL FAILURE [None]
  - RETCHING [None]
  - TREMOR [None]
